FAERS Safety Report 25064801 (Version 1)
Quarter: 2025Q1

REPORT INFORMATION
  Report Type: Other
  Country: CN (occurrence: None)
  Receive Date: 20250311
  Receipt Date: 20250311
  Transmission Date: 20250409
  Serious: Yes (Other)
  Sender: INCYTE
  Company Number: CN-002147023-NVSC2025CN038234

PATIENT
  Age: 60 Year

DRUGS (2)
  1. RUXOLITINIB [Suspect]
     Active Substance: RUXOLITINIB
     Indication: Neoplasm
     Dosage: 20 MG, BID
  2. DECITABINE [Suspect]
     Active Substance: DECITABINE
     Indication: Neoplasm malignant
     Dosage: 20 MG, QD

REACTIONS (1)
  - Myelosuppression [Not Recovered/Not Resolved]
